FAERS Safety Report 9658792 (Version 1)
Quarter: 2013Q4

REPORT INFORMATION
  Report Type: Spontaneous
  Country: US (occurrence: US)
  Receive Date: 20131030
  Receipt Date: 20131030
  Transmission Date: 20140711
  Serious: No
  Sender: FDA-Public Use
  Company Number: US-PURDUE-USA-2011-0078952

PATIENT
  Sex: Male

DRUGS (3)
  1. OXYCONTIN (NDA 22-272) [Suspect]
     Indication: PRODUCT USED FOR UNKNOWN INDICATION
     Dosage: 60 MG, UNK
  2. OXYCONTIN (NDA 22-272) [Suspect]
     Dosage: 20 MG, UNK
  3. OXYCONTIN (NDA 22-272) [Suspect]
     Dosage: 40 MG, UNK

REACTIONS (1)
  - Drug effect decreased [Unknown]
